FAERS Safety Report 4461095-2 (Version None)
Quarter: 2004Q3

REPORT INFORMATION
  Report Type: 
  Country: None (occurrence: None)
  Receive Date: 20040923
  Receipt Date: 20040913
  Transmission Date: 20050211
  Serious: Yes (Other)
  Sender: FDA-Public Use
  Company Number: HQWYE953518MAR04

PATIENT
  Sex: Female

DRUGS (1)
  1. EFFEXOR [Suspect]
     Dosage: UNKNOWN INITIAL DOSE UP TO 225 MG, ORAL
     Route: 048
     Dates: start: 20000314, end: 20031201

REACTIONS (4)
  - ABNORMAL BEHAVIOUR [None]
  - INDIFFERENCE [None]
  - LOSS OF EMPLOYMENT [None]
  - SELF ESTEEM DECREASED [None]
